FAERS Safety Report 10230863 (Version 1)
Quarter: 2014Q2

REPORT INFORMATION
  Report Type: Spontaneous
  Country: US (occurrence: None)
  Receive Date: 20140610
  Receipt Date: 20140610
  Transmission Date: 20141212
  Serious: No
  Sender: FDA-Public Use
  Company Number: None

PATIENT
  Age: 34 Year
  Sex: Female
  Weight: 68.04 kg

DRUGS (1)
  1. BRINTELLIX 10 MG [Suspect]
     Indication: DEPRESSION
     Dosage: 1 10MG PILL ONCE DAILY TAKEN BY MOUTH
     Route: 048
     Dates: start: 20140501, end: 20140530

REACTIONS (7)
  - Depression [None]
  - Aggression [None]
  - Irritability [None]
  - Confusional state [None]
  - Dizziness [None]
  - Muscular weakness [None]
  - Suicidal ideation [None]
